FAERS Safety Report 8993441 (Version 1)
Quarter: 2013Q1

REPORT INFORMATION
  Report Type: Spontaneous
  Country: US (occurrence: US)
  Receive Date: 20130102
  Receipt Date: 20130102
  Transmission Date: 20140127
  Serious: Yes (Death, Hospitalization, Other)
  Sender: FDA-Public Use
  Company Number: US-TEVA-378073USA

PATIENT
  Age: 84 None
  Sex: Female

DRUGS (5)
  1. PROAIR HFA [Suspect]
     Indication: CHRONIC OBSTRUCTIVE PULMONARY DISEASE
     Route: 055
  2. LEVEMIR [Concomitant]
     Indication: DIABETES MELLITUS
     Dosage: 120 UNITS
  3. METFORMIN [Concomitant]
     Indication: DIABETES MELLITUS
  4. SIMVASTATIN [Concomitant]
  5. UNSPECIFIED ANTIHYPERTENSIVE [Concomitant]

REACTIONS (6)
  - Cardiac disorder [Fatal]
  - Lung disorder [Fatal]
  - Dyspnoea [Unknown]
  - Gallbladder disorder [Unknown]
  - Abdominal strangulated hernia [Unknown]
  - Herpes zoster [Unknown]
